FAERS Safety Report 21349625 (Version 4)
Quarter: 2022Q4

REPORT INFORMATION
  Report Type: Other
  Country: JP (occurrence: JP)
  Receive Date: 20220919
  Receipt Date: 20221115
  Transmission Date: 20230113
  Serious: Yes (Hospitalization, Other)
  Sender: FDA-Public Use
  Company Number: JP-CHUGAI-2022004147

PATIENT
  Age: 79 Year
  Sex: Male
  Weight: 57.8 kg

DRUGS (4)
  1. ATEZOLIZUMAB [Suspect]
     Active Substance: ATEZOLIZUMAB
     Indication: Small cell lung cancer extensive stage
     Dosage: 1200 MILLIGRAM, ONCE/4WEEKS
     Route: 041
     Dates: start: 20200915
  2. CARBOPLATIN [Suspect]
     Active Substance: CARBOPLATIN
     Indication: Small cell lung cancer extensive stage
     Dosage: 370 MILLIGRAM, SINGLE
     Route: 041
     Dates: start: 20200915, end: 20200915
  3. CARBOPLATIN [Suspect]
     Active Substance: CARBOPLATIN
     Dosage: 330 MILLIGRAM, ONCE/4WEEKS
     Route: 041
     Dates: start: 20201013, end: 20201208
  4. ETOPOSIDE [Suspect]
     Active Substance: ETOPOSIDE
     Indication: Small cell lung cancer extensive stage
     Dosage: 125 MILLIGRAM, ONCE/4WEEKS
     Route: 065
     Dates: start: 20200915, end: 20201210

REACTIONS (4)
  - Radiation necrosis [Unknown]
  - Seizure [Recovering/Resolving]
  - Neutrophil count decreased [Recovered/Resolved]
  - Nasopharyngitis [Recovered/Resolved]

NARRATIVE: CASE EVENT DATE: 20200925
